FAERS Safety Report 8763769 (Version 1)
Quarter: 2012Q4

REPORT INFORMATION
  Report Type: 
  Country: BR (occurrence: BR)
  Receive Date: 20120831
  Receipt Date: 20120831
  Transmission Date: 20130627
  Serious: Yes (Other)
  Sender: FDA-Public Use
  Company Number: PHHY2012BR074619

PATIENT
  Sex: Female
  Weight: 60 kg

DRUGS (6)
  1. DIOVAN [Suspect]
     Indication: HYPERTENSION
     Dosage: 01 DF, UNK
     Route: 048
  2. DIOVAN [Suspect]
     Dosage: 01 DF, UNK
     Route: 048
     Dates: start: 20120828
  3. SIMVASTATIN [Concomitant]
     Indication: BLOOD CHOLESTEROL
     Dosage: 01 DF, UNK
     Route: 048
  4. DIAMICRON [Concomitant]
     Indication: DIABETES MELLITUS
     Dosage: 01 DF (one tablet after lunch)
     Route: 048
  5. AAS [Concomitant]
     Dosage: 01 DF (one tablet after lunch)
     Route: 048
  6. AMLODIPINE [Concomitant]
     Indication: HYPERTENSION
     Dosage: 01 DF (01 tablet at night)
     Route: 048

REACTIONS (4)
  - Angina pectoris [Unknown]
  - Hypertension [Unknown]
  - Dizziness [Unknown]
  - Tremor [Unknown]
